FAERS Safety Report 19215928 (Version 4)
Quarter: 2021Q3

REPORT INFORMATION
  Report Type: Report from Study
  Country: DE (occurrence: DE)
  Receive Date: 20210505
  Receipt Date: 20210721
  Transmission Date: 20211014
  Serious: Yes (Hospitalization, Other)
  Sender: FDA-Public Use
  Company Number: DE-BEIGENE-BGN-2021-001386

PATIENT

DRUGS (9)
  1. DEKRISTOL [Concomitant]
     Active Substance: CHOLECALCIFEROL
     Dosage: 20000 INTERNATIONAL UNIT
     Route: 065
     Dates: start: 202001
  2. ACALABRUTINIB. [Concomitant]
     Active Substance: ACALABRUTINIB
     Dosage: UNK
     Route: 065
  3. TISLELIZUMAB [Suspect]
     Active Substance: TISLELIZUMAB
     Indication: RICHTER^S SYNDROME
     Dosage: 200 MILLIGRAM
     Route: 042
     Dates: start: 20210203
  4. VALTREX [Concomitant]
     Active Substance: VALACYCLOVIR HYDROCHLORIDE
     Dosage: 500 MILLIGRAM
     Route: 065
     Dates: start: 202004
  5. PANTOPRAZOL [Concomitant]
     Active Substance: PANTOPRAZOLE SODIUM
     Dosage: 40 MILLIGRAM
     Route: 065
     Dates: start: 20210204
  6. ALLOPURINOL. [Concomitant]
     Active Substance: ALLOPURINOL
     Dosage: 300 MILLIGRAM
     Route: 065
     Dates: start: 20210203, end: 20210503
  7. ZANUBRUTINIB [Suspect]
     Active Substance: ZANUBRUTINIB
     Indication: RICHTER^S SYNDROME
     Dosage: 360 MILLIGRAM
     Route: 048
     Dates: start: 20210203
  8. COTRIM [Concomitant]
     Active Substance: SULFAMETHOXAZOLE\TRIMETHOPRIM
     Dosage: 960 MILLIGRAM
     Route: 065
     Dates: start: 202004
  9. JONOSTERIL [Concomitant]
     Dosage: 1000 MILLILITER
     Route: 042
     Dates: start: 20210202

REACTIONS (3)
  - Febrile neutropenia [Not Recovered/Not Resolved]
  - Cytopenia [Recovered/Resolved]
  - Urinary tract infection [Recovered/Resolved]

NARRATIVE: CASE EVENT DATE: 20210503
